FAERS Safety Report 13074128 (Version 2)
Quarter: 2017Q1

REPORT INFORMATION
  Report Type: Spontaneous
  Country: US (occurrence: US)
  Receive Date: 20161229
  Receipt Date: 20170112
  Transmission Date: 20170428
  Serious: Yes (Death, Other)
  Sender: FDA-Public Use
  Company Number: US-BRISTOL-MYERS SQUIBB COMPANY-BMS-2016-109432

PATIENT
  Sex: Female
  Weight: 60.77 kg

DRUGS (1)
  1. YERVOY [Suspect]
     Active Substance: IPILIMUMAB
     Indication: MALIGNANT MELANOMA
     Dosage: 600 MG, Q3WK
     Route: 065
     Dates: start: 20161017

REACTIONS (2)
  - Death [Fatal]
  - Pneumonitis [Unknown]
